FAERS Safety Report 9300000 (Version 9)
Quarter: 2019Q2

REPORT INFORMATION
  Report Type: Report from Study
  Country: CA (occurrence: CA)
  Receive Date: 20130521
  Receipt Date: 20190409
  Transmission Date: 20190711
  Serious: Yes (Hospitalization, Other)
  Sender: FDA-Public Use
  Company Number: CA-AMGEN-CANSP2013034816

PATIENT
  Age: 77 Year
  Sex: Female
  Weight: 62 kg

DRUGS (23)
  1. RABEPRAZOLE [Concomitant]
     Active Substance: RABEPRAZOLE
  2. CALCIUM [Concomitant]
     Active Substance: CALCIUM
  3. AZATHIOPRINE. [Concomitant]
     Active Substance: AZATHIOPRINE
     Dosage: UNK
  4. VITAMIN D [COLECALCIFEROL] [Concomitant]
     Active Substance: CHOLECALCIFEROL
  5. TYLENOL [Concomitant]
     Active Substance: ACETAMINOPHEN
     Dosage: Q46 HOURS
  6. HYDROMORPHONE [Concomitant]
     Active Substance: HYDROMORPHONE
  7. HYDROCHOROTHIAZIDE [Concomitant]
     Active Substance: HYDROCHLOROTHIAZIDE
     Dosage: 12.5 MILLIGRAM, QD
  8. RAN-RABEPRAZOLE [Concomitant]
     Indication: ABDOMINAL PAIN UPPER
     Dosage: 20 MILLIGRAM, QD
  9. FOLIC ACID. [Concomitant]
     Active Substance: FOLIC ACID
     Dosage: HALF OF 4 MG 4 TIMES A WEEK
  10. PROLIA [Suspect]
     Active Substance: DENOSUMAB
     Indication: OSTEOPOROSIS POSTMENOPAUSAL
     Dosage: 60 MILLIGRAM, Q6MO
     Route: 058
     Dates: start: 20121219
  11. RITUXAN [Concomitant]
     Active Substance: RITUXIMAB
     Dosage: UNK UNK, Q6MO
  12. ZINC. [Concomitant]
     Active Substance: ZINC
     Dosage: UNK
  13. COVERSYL [PERINDOPRIL ARGININE] [Concomitant]
     Active Substance: PERINDOPRIL ARGININE
     Indication: HYPERTENSION
     Dosage: 4 MILLIGRAM, QD
  14. CRANBERRY [ASCORBIC ACID;VACCINIUM SPP.] [Concomitant]
     Dosage: UNK
  15. MAGNESIUM [Concomitant]
     Active Substance: MAGNESIUM
  16. PROBIOTIC [BIFIDOBACTERIUM LACTIS] [Concomitant]
  17. GABAPENTIN. [Concomitant]
     Active Substance: GABAPENTIN
  18. PANTOPRAZOLE [Concomitant]
     Active Substance: PANTOPRAZOLE
  19. HCTZ [Concomitant]
     Active Substance: HYDROCHLOROTHIAZIDE
  20. VITAMIN C [Concomitant]
     Active Substance: ASCORBIC ACID
  21. PREDNISONE. [Concomitant]
     Active Substance: PREDNISONE
     Indication: RHEUMATOID ARTHRITIS
     Dosage: 4 MILLIGRAM
  22. NORVASC [Concomitant]
     Active Substance: AMLODIPINE BESYLATE
     Dosage: 4 MILLIGRAM, QD
  23. DIDROCAL [Concomitant]
     Active Substance: CALCIUM CARBONATE\ETIDRONATE DISODIUM

REACTIONS (17)
  - Pain in extremity [Not Recovered/Not Resolved]
  - Bladder disorder [Unknown]
  - Escherichia infection [Unknown]
  - Gastrointestinal disorder [Unknown]
  - Pericardial effusion [Unknown]
  - Pleural effusion [Unknown]
  - Faeces discoloured [Unknown]
  - Mobility decreased [Unknown]
  - Urinary tract infection [Not Recovered/Not Resolved]
  - Nasopharyngitis [Unknown]
  - Haemorrhage [Unknown]
  - Constipation [Unknown]
  - Asthenia [Unknown]
  - Hernia [Unknown]
  - Bone pain [Not Recovered/Not Resolved]
  - Paraesthesia [Unknown]
  - Bladder pain [Unknown]

NARRATIVE: CASE EVENT DATE: 201310
